FAERS Safety Report 15896301 (Version 1)
Quarter: 2019Q1

REPORT INFORMATION
  Report Type: Spontaneous
  Country: GR (occurrence: GR)
  Receive Date: 20190131
  Receipt Date: 20190131
  Transmission Date: 20190417
  Serious: Yes (Death)
  Sender: FDA-Public Use
  Company Number: GR-BAYER-2019-018220

PATIENT
  Age: 55 Year
  Sex: Male

DRUGS (1)
  1. CIPROXIN 500 MG [Suspect]
     Active Substance: CIPROFLOXACIN
     Indication: BIOPSY PROSTATE
     Dosage: 500 MG, UNK
     Route: 048
     Dates: start: 20180926, end: 20180926

REACTIONS (4)
  - Death [Fatal]
  - Rash generalised [None]
  - Pruritus generalised [None]
  - Discomfort [None]

NARRATIVE: CASE EVENT DATE: 20180926
